FAERS Safety Report 24004625 (Version 2)
Quarter: 2024Q3

REPORT INFORMATION
  Report Type: Spontaneous
  Country: IR (occurrence: IR)
  Receive Date: 20240624
  Receipt Date: 20240702
  Transmission Date: 20241016
  Serious: Yes (Hospitalization, Other)
  Sender: ACCORD
  Company Number: IR-Accord-431120

PATIENT
  Age: 19 Year
  Sex: Female

DRUGS (10)
  1. ETOPOSIDE [Suspect]
     Active Substance: ETOPOSIDE
     Indication: Extra-osseous Ewing^s sarcoma
     Dosage: 100 MG/ M2-150MG D1-D5
  2. CYCLOPHOSPHAMIDE [Suspect]
     Active Substance: CYCLOPHOSPHAMIDE
     Indication: Extra-osseous Ewing^s sarcoma
     Dosage: (1200 MG/M2-2000MG D1)) IN WEEKS 1-5-9-15-17
  3. DOXORUBICIN [Suspect]
     Active Substance: DOXORUBICIN
     Indication: Extra-osseous Ewing^s sarcoma
     Dosage: 37.5 MG/M2-60MGD1-D2, TOTALLY: 600  MG
  4. IFOSFAMIDE [Suspect]
     Active Substance: IFOSFAMIDE
     Indication: Extra-osseous Ewing^s sarcoma
     Dosage: 1800 MG/M2-3000MG D1-D5
  5. VINCRISTINE [Suspect]
     Active Substance: VINCRISTINE
     Indication: Extra-osseous Ewing^s sarcoma
     Dosage: 2 MG/M2 -3.5  MG D1
  6. ETOPOSIDE [Suspect]
     Active Substance: ETOPOSIDE
     Indication: Primitive neuroectodermal tumour
     Dosage: 100 MG/ M2-150MG D1-D5
  7. CYCLOPHOSPHAMIDE [Suspect]
     Active Substance: CYCLOPHOSPHAMIDE
     Indication: Primitive neuroectodermal tumour
     Dosage: (1200 MG/M2-2000MG D1)) IN WEEKS 1-5-9-15-17
  8. DOXORUBICIN [Suspect]
     Active Substance: DOXORUBICIN
     Indication: Primitive neuroectodermal tumour
     Dosage: 37.5 MG/M2-60MGD1-D2, TOTALLY: 600  MG
  9. IFOSFAMIDE [Suspect]
     Active Substance: IFOSFAMIDE
     Indication: Primitive neuroectodermal tumour
     Dosage: 1800 MG/M2-3000MG D1-D5
  10. VINCRISTINE [Suspect]
     Active Substance: VINCRISTINE
     Indication: Primitive neuroectodermal tumour
     Dosage: 2 MG/M2 -3.5  MG D1

REACTIONS (1)
  - Myocarditis [Recovered/Resolved]
